FAERS Safety Report 6428446-0 (Version None)
Quarter: 2009Q4

REPORT INFORMATION
  Report Type: 
  Country: None (occurrence: None)
  Receive Date: 20091105
  Receipt Date: 20091030
  Transmission Date: 20100525
  Serious: Yes (Hospitalization, Disabling, Other)
  Sender: FDA-Public Use
  Company Number: B0511835A

PATIENT
  Sex: Female

DRUGS (8)
  1. AUGMENTIN '125' [Suspect]
     Indication: PRODUCTIVE COUGH
     Route: 065
     Dates: start: 20001224
  2. ADVIL [Suspect]
     Indication: ANTIINFLAMMATORY THERAPY
     Route: 065
     Dates: start: 20001222
  3. EXOMUC [Suspect]
     Indication: PRODUCTIVE COUGH
     Route: 065
     Dates: start: 20001224
  4. SOLUPRED [Suspect]
     Indication: PRODUCTIVE COUGH
     Route: 065
     Dates: start: 20001224
  5. TUSSISEDAL [Suspect]
     Indication: DRUG USE FOR UNKNOWN INDICATION
     Route: 048
     Dates: start: 20001224
  6. SPASFON LYOC [Concomitant]
     Indication: DRUG USE FOR UNKNOWN INDICATION
     Route: 048
  7. UNSPECIFIED MEDICATION [Concomitant]
     Dosage: 1UNIT SINGLE DOSE
     Route: 048
     Dates: start: 20001201, end: 20001201
  8. UNSPECIFIED MEDICATION [Concomitant]
     Dosage: 1UNIT SINGLE DOSE
     Route: 048
     Dates: start: 20001201, end: 20001201

REACTIONS (44)
  - ALLERGIC BRONCHITIS [None]
  - AMYOTROPHY [None]
  - ASTHENIA [None]
  - ASTHMA [None]
  - CONJUNCTIVAL DISORDER [None]
  - DRY EYE [None]
  - DRY MOUTH [None]
  - DYSGRAPHIA [None]
  - DYSPEPSIA [None]
  - ERYTHEMA MULTIFORME [None]
  - EYE IRRITATION [None]
  - EYE PAIN [None]
  - EYELID FUNCTION DISORDER [None]
  - EYELID OEDEMA [None]
  - HALLUCINATION, VISUAL [None]
  - HYPERTHERMIA [None]
  - HYPOTENSION [None]
  - KERATITIS [None]
  - LACRIMAL DISORDER [None]
  - LIP OEDEMA [None]
  - LUNG DISORDER [None]
  - LYMPHADENOPATHY [None]
  - MOUTH HAEMORRHAGE [None]
  - MOUTH ULCERATION [None]
  - OCULAR DISCOMFORT [None]
  - PHOTOPHOBIA [None]
  - PHOTOSENSITIVITY REACTION [None]
  - PNEUMONITIS [None]
  - PSYCHOTHERAPY [None]
  - RADIATION SKIN INJURY [None]
  - RASH GENERALISED [None]
  - RASH MACULO-PAPULAR [None]
  - RASH VESICULAR [None]
  - RESPIRATORY FAILURE [None]
  - SKIN DISORDER [None]
  - SPEECH REHABILITATION [None]
  - SPUTUM PURULENT [None]
  - STEVENS-JOHNSON SYNDROME [None]
  - STOMATITIS [None]
  - TONGUE DISCOLOURATION [None]
  - TOXIC SKIN ERUPTION [None]
  - UPPER AIRWAY OBSTRUCTION [None]
  - VISUAL ACUITY REDUCED [None]
  - VULVITIS [None]
